FAERS Safety Report 7885713-1 (Version None)
Quarter: 2011Q4

REPORT INFORMATION
  Report Type: 
  Country: None (occurrence: None)
  Receive Date: 20111102
  Receipt Date: 20111024
  Transmission Date: 20120403
  Serious: Yes (Hospitalization, Other)
  Sender: FDA-Public Use
  Company Number: US-ASTRAZENECA-2011SE64379

PATIENT
  Age: 71 Year
  Sex: Female

DRUGS (2)
  1. SODIUM MEDROL [Concomitant]
  2. NEXIUM [Suspect]
     Route: 048

REACTIONS (5)
  - CHRONIC OBSTRUCTIVE PULMONARY DISEASE [None]
  - ASTHMA [None]
  - RESPIRATORY DISORDER [None]
  - EMPHYSEMA [None]
  - PRODUCTIVE COUGH [None]
